FAERS Safety Report 10713459 (Version 13)
Quarter: 2015Q2

REPORT INFORMATION
  Report Type: Report from Study
  Country: CA (occurrence: CA)
  Receive Date: 20150115
  Receipt Date: 20150520
  Transmission Date: 20150821
  Serious: Yes (Hospitalization, Other)
  Sender: FDA-Public Use
  Company Number: CA-JNJFOC-20150106478

PATIENT
  Age: 62 Year
  Sex: Female
  Weight: 69.85 kg

DRUGS (3)
  1. LYRICA [Suspect]
     Active Substance: PREGABALIN
     Indication: PAIN
     Dates: start: 201501
  2. IMBRUVICA [Suspect]
     Active Substance: IBRUTINIB
     Indication: CHRONIC LYMPHOCYTIC LEUKAEMIA
     Route: 048
     Dates: start: 20150312, end: 20150324
  3. IMBRUVICA [Suspect]
     Active Substance: IBRUTINIB
     Indication: CHRONIC LYMPHOCYTIC LEUKAEMIA
     Dosage: DOSE ALSO REPORTED AS 280 MG FROM 06-JAN-2015 TO 19-JAN-2015
     Route: 048
     Dates: start: 20150106, end: 20150119

REACTIONS (11)
  - Neutrophil count decreased [Recovered/Resolved]
  - Neck pain [Recovered/Resolved]
  - Headache [Not Recovered/Not Resolved]
  - Decreased appetite [Not Recovered/Not Resolved]
  - Hypoaesthesia [Recovering/Resolving]
  - Headache [Recovered/Resolved]
  - Carpal tunnel syndrome [Not Recovered/Not Resolved]
  - Platelet count decreased [Not Recovered/Not Resolved]
  - Subdural haematoma [Unknown]
  - Arthralgia [Not Recovered/Not Resolved]
  - Nasopharyngitis [Recovered/Resolved]

NARRATIVE: CASE EVENT DATE: 20150108
